FAERS Safety Report 19048022 (Version 1)
Quarter: 2021Q1

REPORT INFORMATION
  Report Type: Spontaneous
  Country: IN (occurrence: IN)
  Receive Date: 20210323
  Receipt Date: 20210323
  Transmission Date: 20210420
  Serious: Yes (Other)
  Sender: FDA-Public Use
  Company Number: IN-CIPLA LTD.-2021IN01674

PATIENT

DRUGS (4)
  1. THYRONORM [Concomitant]
     Active Substance: LEVOTHYROXINE
     Indication: THYROID DISORDER
     Dosage: UNK, QD (MORNING BEFORE FOOD)
     Route: 065
     Dates: start: 2000
  2. FORACORT SYNCHROBREATHE [Suspect]
     Active Substance: BUDESONIDE\FORMOTEROL FUMARATE
     Indication: PRODUCT USED FOR UNKNOWN INDICATION
     Dosage: UNK
     Route: 065
     Dates: start: 202102, end: 202102
  3. TELMISARTAN. [Concomitant]
     Active Substance: TELMISARTAN
     Indication: BLOOD PRESSURE ABNORMAL
     Dosage: UNK, QD (MORNING BEFORE FOOD)
     Route: 065
     Dates: start: 2011
  4. ASTHALIN [SALBUTAMOL SULFATE] [Suspect]
     Active Substance: ALBUTEROL SULFATE
     Indication: PRODUCT USED FOR UNKNOWN INDICATION
     Dosage: UNK
     Route: 065
     Dates: start: 1992

REACTIONS (14)
  - Cardiomegaly [Unknown]
  - Oropharyngeal discomfort [Unknown]
  - Gait disturbance [Unknown]
  - Cardiac discomfort [Unknown]
  - Aphasia [Unknown]
  - Emotional distress [Unknown]
  - Hypersensitivity [Unknown]
  - Palpitations [Unknown]
  - Fungal infection [Unknown]
  - Cardiac valve disease [Unknown]
  - Asthma [Unknown]
  - Respiratory rate increased [Unknown]
  - Body temperature increased [Unknown]
  - Cardiovascular disorder [Unknown]

NARRATIVE: CASE EVENT DATE: 2011
